FAERS Safety Report 7507039-8 (Version None)
Quarter: 2011Q2

REPORT INFORMATION
  Report Type: 
  Country: None (occurrence: None)
  Receive Date: 20110526
  Receipt Date: 20110517
  Transmission Date: 20111010
  Serious: Yes (Other)
  Sender: FDA-Public Use
  Company Number: FR-UCBSA-014873

PATIENT

DRUGS (1)
  1. KEPPRA [Suspect]
     Dates: start: 20100501

REACTIONS (1)
  - BONE MARROW FAILURE [None]
